FAERS Safety Report 8671498 (Version 3)
Quarter: 2012Q4

REPORT INFORMATION
  Report Type: Report from Study
  Country: CA (occurrence: CA)
  Receive Date: 20120718
  Receipt Date: 20121218
  Transmission Date: 20130627
  Serious: Yes (Other)
  Sender: FDA-Public Use
  Company Number: CA-ABBOTT-12P-028-0955442-00

PATIENT
  Sex: Female
  Weight: 80 kg

DRUGS (1)
  1. LUPRON DEPOT [Suspect]
     Indication: PROSTATE CANCER
     Dosage: 3 month depot
     Route: 030
     Dates: start: 2004

REACTIONS (6)
  - Metastatic neoplasm [Unknown]
  - Urethral obstruction [Unknown]
  - White blood cell count decreased [Unknown]
  - Shock [Unknown]
  - Sepsis [Unknown]
  - Neutropenia [Unknown]
